FAERS Safety Report 5519155-0 (Version None)
Quarter: 2007Q4

REPORT INFORMATION
  Report Type: 
  Country: None (occurrence: None)
  Receive Date: 20071116
  Receipt Date: 20071106
  Transmission Date: 20080405
  Serious: Yes (Other)
  Sender: FDA-Public Use
  Company Number: FR-NOVOPROD-268776

PATIENT

DRUGS (3)
  1. NORDITROPIN [Suspect]
     Indication: FOETAL GROWTH RETARDATION
     Dosage: 2.2 MG, QD
     Route: 058
     Dates: start: 20060719, end: 20070110
  2. NORDITROPIN [Suspect]
     Dosage: 2.5 MG, QD
     Dates: start: 20070110, end: 20070710
  3. NORDITROPIN [Suspect]
     Dosage: 3 MG, QD
     Route: 058
     Dates: start: 20070710, end: 20071022

REACTIONS (4)
  - HEADACHE [None]
  - INTRACRANIAL PRESSURE INCREASED [None]
  - PAPILLOEDEMA [None]
  - VISUAL ACUITY REDUCED [None]
